FAERS Safety Report 17821279 (Version 2)
Quarter: 2020Q2

REPORT INFORMATION
  Report Type: Report from Study
  Country: JP (occurrence: JP)
  Receive Date: 20200525
  Receipt Date: 20200528
  Transmission Date: 20200714
  Serious: Yes (Other)
  Sender: FDA-Public Use
  Company Number: JP-HORIZON-BUP-0028-2020

PATIENT
  Age: 19 Year
  Sex: Female
  Weight: 42.6 kg

DRUGS (9)
  1. SODIUM BENZOATE [Concomitant]
     Active Substance: SODIUM BENZOATE
     Indication: CARBAMOYL PHOSPHATE SYNTHETASE DEFICIENCY
     Dosage: 2.5 G, QD
     Route: 048
     Dates: start: 20130307, end: 20130527
  2. ALESION [Concomitant]
     Active Substance: EPINASTINE HYDROCHLORIDE
     Indication: RHINITIS ALLERGIC
     Dosage: 2 G, QD
     Route: 048
     Dates: end: 20130825
  3. CITRULLINE [Concomitant]
     Active Substance: CITRULLINE
     Indication: UREA CYCLE DISORDER
     Dosage: 7 G, QD
     Route: 048
  4. NASONEX [Concomitant]
     Active Substance: MOMETASONE FUROATE
     Indication: RHINITIS ALLERGIC
     Route: 045
     Dates: start: 20130318, end: 20130825
  5. PATANOL [Concomitant]
     Active Substance: OLOPATADINE HYDROCHLORIDE
     Route: 047
     Dates: start: 20130610, end: 20131208
  6. BUPHENYL [Suspect]
     Active Substance: SODIUM PHENYLBUTYRATE
     Indication: CARBAMOYL PHOSPHATE SYNTHETASE DEFICIENCY
     Dosage: 4.5 G, QD; SEE NARRATIVE
     Route: 048
     Dates: start: 20130205, end: 20140227
  7. MONILAC [Concomitant]
     Active Substance: LACTULOSE
     Indication: CARBAMOYL PHOSPHATE SYNTHETASE DEFICIENCY
     Dosage: 10 ML, QD
     Route: 048
     Dates: end: 20140123
  8. SINGULAIR [Concomitant]
     Active Substance: MONTELUKAST SODIUM
     Indication: ASTHMA
     Route: 048
     Dates: start: 20130826
  9. AMIYU [Concomitant]
     Active Substance: AMINO ACIDS, SOURCE UNSPECIFIED
     Indication: CARBAMOYL PHOSPHATE SYNTHETASE DEFICIENCY
     Dosage: 5 G, QD
     Route: 048
     Dates: end: 20131111

REACTIONS (2)
  - Alopecia [Recovered/Resolved]
  - Affective disorder [Recovered/Resolved]

NARRATIVE: CASE EVENT DATE: 20140123
